FAERS Safety Report 19123873 (Version 1)
Quarter: 2021Q2

REPORT INFORMATION
  Report Type: Spontaneous
  Country: FR (occurrence: FR)
  Receive Date: 20210412
  Receipt Date: 20210412
  Transmission Date: 20210717
  Serious: Yes (Hospitalization)
  Sender: FDA-Public Use
  Company Number: FR-ORGANON-O2104FRA000610

PATIENT
  Age: 60 Year
  Sex: Female

DRUGS (7)
  1. PROPOFOL. [Concomitant]
     Active Substance: PROPOFOL
     Indication: GENERAL ANAESTHESIA
     Dosage: 250 MILLIGRAM, 1 TOTAL (ONCE)
     Route: 042
     Dates: start: 20210309, end: 20210309
  2. ATRACURIUM HOSPIRA [Suspect]
     Active Substance: ATRACURIUM BESYLATE
     Indication: GENERAL ANAESTHESIA
     Dosage: 30 MILLIGRAM, 1 TOTAL (ONCE)
     Route: 042
     Dates: start: 20210309, end: 20210309
  3. XYLOCAINE #1 [Suspect]
     Active Substance: LIDOCAINE
     Indication: GENERAL ANAESTHESIA
     Dosage: 50 MILLIGRAM, 1 TOTAL (ONCE), INJECTABLE SOLUTION IN AMPOULE, STRENGTH: 1 PERCENT (50 MG/5 ML)
     Route: 042
     Dates: start: 20210309, end: 20210309
  4. SUFENTANIL [Concomitant]
     Active Substance: SUFENTANIL
     Indication: GENERAL ANAESTHESIA
     Dosage: 15 MICROGRAM, 1 TOTAL (ONCE)
     Route: 042
     Dates: start: 20210309, end: 20210309
  5. KETAMINE [Concomitant]
     Active Substance: KETAMINE
     Indication: GENERAL ANAESTHESIA
     Dosage: 30 MILLIGRAM, 1 TOTAL (ONCE)
     Route: 042
     Dates: start: 20210309, end: 20210309
  6. CELESTENE [BETAMETHASONE] [Suspect]
     Active Substance: BETAMETHASONE
     Indication: GENERAL ANAESTHESIA
     Dosage: 8 MILLIGRAM, 1 TOTAL (ONCE)
     Route: 042
     Dates: start: 20210309, end: 20210309
  7. PROPRANOLOL [Concomitant]
     Active Substance: PROPRANOLOL HYDROCHLORIDE
     Dosage: UNK

REACTIONS (2)
  - Rash [Recovered/Resolved]
  - Blood pressure decreased [Recovered/Resolved]

NARRATIVE: CASE EVENT DATE: 20210309
